FAERS Safety Report 5765911-3 (Version None)
Quarter: 2008Q2

REPORT INFORMATION
  Report Type: 
  Country: None (occurrence: None)
  Receive Date: 20080611
  Receipt Date: 20070412
  Transmission Date: 20081010
  Serious: Yes (Hospitalization, Other)
  Sender: FDA-Public Use
  Company Number: US-BRISTOL-MYERS SQUIBB COMPANY-13797568

PATIENT
  Age: 58 Year
  Sex: Male

DRUGS (1)
  1. CARBIDOPA AND LEVODOPA [Suspect]
     Route: 048
     Dates: start: 20051125

REACTIONS (1)
  - ADVERSE EVENT [None]
